FAERS Safety Report 4611033-4 (Version None)
Quarter: 2005Q1

REPORT INFORMATION
  Report Type: 
  Country: None (occurrence: None)
  Receive Date: 20050317
  Receipt Date: 20050311
  Transmission Date: 20050727
  Serious: Yes (Hospitalization)
  Sender: FDA-Public Use
  Company Number: 200510641EU

PATIENT
  Age: 33 Year
  Sex: Female

DRUGS (4)
  1. LANTUS [Suspect]
     Indication: DIABETES MELLITUS
     Route: 058
     Dates: start: 20040301
  2. OPTIPEN (INSULIN PUMP) [Suspect]
     Indication: DIABETES MELLITUS
     Dates: start: 20040301
  3. ANTIBIOTICS [Suspect]
  4. HUMALOG [Concomitant]
     Indication: DIABETES MELLITUS

REACTIONS (6)
  - HYPOCALCAEMIA [None]
  - HYPOKALAEMIA [None]
  - IATROGENIC INJURY [None]
  - METABOLIC ALKALOSIS [None]
  - NASOPHARYNGEAL DISORDER [None]
  - RENAL FAILURE [None]
